FAERS Safety Report 25738781 (Version 1)
Quarter: 2025Q3

REPORT INFORMATION
  Report Type: Spontaneous
  Country: TW (occurrence: TW)
  Receive Date: 20250829
  Receipt Date: 20250829
  Transmission Date: 20251020
  Serious: Yes (Hospitalization)
  Sender: MERCK SHARP & DOHME LLC
  Company Number: TW-009507513-2322945

PATIENT
  Age: 38 Year
  Sex: Female

DRUGS (1)
  1. CILASTATIN\IMIPENEM\RELEBACTAM [Suspect]
     Active Substance: CILASTATIN\IMIPENEM\RELEBACTAM
     Indication: Skin infection
     Route: 042

REACTIONS (2)
  - Tachycardia [Unknown]
  - Epilepsy [Recovering/Resolving]
